FAERS Safety Report 14747393 (Version 1)
Quarter: 2018Q2

REPORT INFORMATION
  Report Type: Spontaneous
  Country: FR (occurrence: FR)
  Receive Date: 20180411
  Receipt Date: 20180411
  Transmission Date: 20180711
  Serious: Yes (Other)
  Sender: FDA-Public Use
  Company Number: FR-PFIZER INC-2018140739

PATIENT
  Age: 68 Year
  Sex: Female

DRUGS (13)
  1. RAMIPRIL. [Concomitant]
     Active Substance: RAMIPRIL
  2. FARMORUBICINE [Suspect]
     Active Substance: EPIRUBICIN HYDROCHLORIDE
     Indication: BREAST CANCER
     Dosage: 100 MG/M2, UNK (100MG/M?/TREATMENT)
     Route: 042
     Dates: start: 20020125, end: 20020426
  3. PRAVASTATIN. [Concomitant]
     Active Substance: PRAVASTATIN
  4. EVISTA [Concomitant]
     Active Substance: RALOXIFENE HYDROCHLORIDE
  5. LASILIX /00032601/ [Concomitant]
     Active Substance: FUROSEMIDE
  6. ASPEGIC [Concomitant]
     Active Substance: ASPIRIN DL-LYSINE
  7. FLUOROURACIL SANOFI-SYNTHELABO [Suspect]
     Active Substance: FLUOROURACIL SODIUM
     Indication: BREAST CANCER
     Dosage: 500 MG/M2, UNK (500 MG/M?/TREATMENT)
     Route: 042
     Dates: start: 20020125, end: 20020426
  8. LEVOTHYROX [Concomitant]
     Active Substance: LEVOTHYROXINE
  9. EUPANTOL [Concomitant]
     Active Substance: PANTOPRAZOLE SODIUM
  10. SMECTA [Concomitant]
     Active Substance: MONTMORILLONITE
  11. ENDOXAN /00021102/ [Suspect]
     Active Substance: CYCLOPHOSPHAMIDE
     Indication: BREAST CANCER
     Dosage: 500 MG/M2, UNK (500MG/M?/TREATMENT)
     Route: 042
     Dates: start: 20020125, end: 20020426
  12. BISOPROLOL [Concomitant]
     Active Substance: BISOPROLOL
  13. SPASFON /00765801/ [Concomitant]
     Active Substance: PHLOROGLUCINOL\1,3,5-TRIMETHOXYBENZENE

REACTIONS (5)
  - Ejection fraction decreased [Recovering/Resolving]
  - Recurrent cancer [None]
  - Congestive cardiomyopathy [Recovering/Resolving]
  - Dyslipidaemia [None]
  - Metastases to liver [None]

NARRATIVE: CASE EVENT DATE: 20171101
